FAERS Safety Report 5590858-5 (Version None)
Quarter: 2008Q1

REPORT INFORMATION
  Report Type: 
  Country: None (occurrence: None)
  Receive Date: 20080110
  Receipt Date: 20071227
  Transmission Date: 20080703
  Serious: Yes (Life-Threatening, Hospitalization, Other)
  Sender: FDA-Public Use
  Company Number: 02100-JPN-07-0294

PATIENT
  Age: 74 Year
  Sex: Female

DRUGS (10)
  1. CILOSTAZOL [Suspect]
     Dosage: 200 MG
     Route: 048
     Dates: end: 20070610
  2. AMLODIPINE BESYLATE [Suspect]
     Indication: HYPERTENSION
     Dosage: 5 MG
     Route: 048
     Dates: end: 20070610
  3. FAMOTIDINE [Suspect]
     Indication: GASTRIC ULCER
     Dosage: 20 MG
     Route: 048
     Dates: end: 20070610
  4. AMANTADINE HYDROCHLORIDE [Suspect]
     Indication: PARKINSONISM
     Dosage: 150 MG
     Route: 048
     Dates: end: 20070614
  5. VALSARTAN [Concomitant]
  6. WARFARIN SODIUM [Concomitant]
  7. LEVODOPA BENSERAZIDE HYDROCHLORIDE [Concomitant]
  8. FERROUS CITRATE [Concomitant]
  9. ATORVASTATIN CALCIUM [Concomitant]
  10. CABERGOLINE [Concomitant]

REACTIONS (6)
  - BRADYCARDIA [None]
  - HYPOKALAEMIA [None]
  - TORSADE DE POINTES [None]
  - VENTRICULAR EXTRASYSTOLES [None]
  - VENTRICULAR FIBRILLATION [None]
  - VENTRICULAR TACHYCARDIA [None]
